FAERS Safety Report 11892004 (Version 1)
Quarter: 2016Q1

REPORT INFORMATION
  Report Type: Spontaneous
  Country: US (occurrence: None)
  Receive Date: 20160105
  Receipt Date: 20160105
  Transmission Date: 20160526
  Serious: No
  Sender: FDA-Public Use
  Company Number: None

PATIENT
  Age: 20 Year
  Sex: Female
  Weight: 54.43 kg

DRUGS (2)
  1. NUVARING [Concomitant]
     Active Substance: ETHINYL ESTRADIOL\ETONOGESTREL
  2. MIRVASO [Suspect]
     Active Substance: BRIMONIDINE TARTRATE
     Indication: ROSACEA
     Dosage: DIME SIZE, APPLIED TO A SURFACE, USUALLY THE SKIN
     Dates: start: 20151207, end: 20160104

REACTIONS (5)
  - Skin burning sensation [None]
  - Erythema [None]
  - Condition aggravated [None]
  - Activities of daily living impaired [None]
  - Pain [None]

NARRATIVE: CASE EVENT DATE: 20160104
